FAERS Safety Report 6482747-9 (Version None)
Quarter: 2009Q4

REPORT INFORMATION
  Report Type: 
  Country: None (occurrence: None)
  Receive Date: 20091209
  Receipt Date: 20091022
  Transmission Date: 20100525
  Serious: No
  Sender: FDA-Public Use
  Company Number: US-AMGEN-KDL370766

PATIENT
  Sex: Female

DRUGS (2)
  1. ENBREL [Suspect]
     Indication: RHEUMATOID ARTHRITIS
     Route: 058
     Dates: start: 20090329
  2. PLAQUENIL [Concomitant]

REACTIONS (6)
  - FATIGUE [None]
  - HEADACHE [None]
  - IMPAIRED HEALING [None]
  - NAUSEA [None]
  - SKIN LACERATION [None]
  - VIRAL DIARRHOEA [None]
